FAERS Safety Report 12138795 (Version 8)
Quarter: 2016Q2

REPORT INFORMATION
  Report Type: Report from Study
  Country: CN (occurrence: CN)
  Receive Date: 20160302
  Receipt Date: 20160621
  Transmission Date: 20160815
  Serious: Yes (Hospitalization)
  Sender: FDA-Public Use
  Company Number: CN-GLAXOSMITHKLINE-CN2016GSK017007

PATIENT
  Age: 55 Year
  Sex: Female
  Weight: 66.4 kg

DRUGS (10)
  1. PLACEBO [Suspect]
     Active Substance: UNSPECIFIED INGREDIENT
     Indication: SYSTEMIC LUPUS ERYTHEMATOSUS
     Dosage: UNK, CYC
     Route: 058
     Dates: start: 20130823, end: 20140725
  2. FERROUS SUCCINATE TABLETS [Concomitant]
     Indication: IRON DEFICIENCY ANAEMIA
     Dosage: 200 MG, BID
     Route: 048
     Dates: start: 20160301, end: 20160303
  3. METRONIDAZOLE. [Concomitant]
     Active Substance: METRONIDAZOLE
     Dosage: UNK
     Dates: end: 20160308
  4. ESCITALOPRAM [Concomitant]
     Active Substance: ESCITALOPRAM OXALATE
     Indication: INSOMNIA
     Dosage: 10 MG, QD
     Route: 048
     Dates: start: 20160303
  5. POTASSIUM CHLORIDE SUSTAINED RELEASE [Concomitant]
     Indication: ELECTROLYTE IMBALANCE
     Dosage: 500 MG, BID
     Route: 048
     Dates: start: 20160302, end: 20160306
  6. ZIPRASIDONE HYDROCHLORIDE. [Concomitant]
     Active Substance: ZIPRASIDONE HYDROCHLORIDE
     Indication: INSOMNIA
     Dosage: 3.75 MG, QD
     Route: 048
     Dates: start: 20160303
  7. COMPOUND LIQUORICE TABLETS [Concomitant]
     Indication: COUGH
     Dosage: 2 DF, TID
     Dates: start: 20160304, end: 20160305
  8. POTASSIUM CHLORIDE INJECTION [Concomitant]
     Active Substance: POTASSIUM CHLORIDE
     Indication: ELECTROLYTE IMBALANCE
     Dosage: 1.5 G, QD
     Route: 042
     Dates: start: 20160302, end: 20160302
  9. METRONIDAZOLE. [Concomitant]
     Active Substance: METRONIDAZOLE
     Dosage: UNK MG, UNK
     Route: 042
     Dates: start: 20160203, end: 20160207
  10. BELIMUMAB [Suspect]
     Active Substance: BELIMUMAB
     Indication: SYSTEMIC LUPUS ERYTHEMATOSUS
     Dosage: 10 MG/KG, CYC
     Route: 042
     Dates: start: 20140822

REACTIONS (2)
  - Chest discomfort [Recovered/Resolved]
  - Chest discomfort [Recovered/Resolved]

NARRATIVE: CASE EVENT DATE: 20160203
